FAERS Safety Report 4446595-3 (Version None)
Quarter: 2004Q3

REPORT INFORMATION
  Report Type: 
  Country: None (occurrence: None)
  Receive Date: 20040908
  Receipt Date: 20040830
  Transmission Date: 20050211
  Serious: Yes (Death)
  Sender: FDA-Public Use
  Company Number: S04-UKI-02778-01

PATIENT
  Age: 45 Year

DRUGS (3)
  1. CIPRALEX (ESCITALOPRAM) [Suspect]
     Indication: DEPRESSION
     Dosage: 10 MG QD PO
     Route: 048
     Dates: start: 20040301, end: 20040408
  2. CIPRALEX (ESCITALOPRAM) [Suspect]
     Indication: DEPRESSION
     Dosage: 20 MG QD PO
     Route: 048
     Dates: start: 20040408, end: 20040504
  3. ZOPICLONE [Concomitant]

REACTIONS (11)
  - BURNING SENSATION [None]
  - COMPLETED SUICIDE [None]
  - DYSPEPSIA [None]
  - DYSPHEMIA [None]
  - INSOMNIA [None]
  - MUSCLE TWITCHING [None]
  - NAUSEA [None]
  - PANIC ATTACK [None]
  - PARAESTHESIA [None]
  - POLLAKIURIA [None]
  - TREATMENT NONCOMPLIANCE [None]
